FAERS Safety Report 21164047 (Version 2)
Quarter: 2022Q3

REPORT INFORMATION
  Report Type: Spontaneous
  Country: EG (occurrence: EG)
  Receive Date: 20220803
  Receipt Date: 20220812
  Transmission Date: 20221026
  Serious: Yes (Other)
  Sender: FDA-Public Use
  Company Number: EG-NOVOPROD-942801

PATIENT
  Age: 581 Month
  Sex: Female
  Weight: 69 kg

DRUGS (10)
  1. ROSUVASTATIN [Concomitant]
     Active Substance: ROSUVASTATIN
     Indication: Hypercholesterolaemia
     Dosage: 1 TAB/DAY
     Route: 048
     Dates: start: 2010
  2. ASPIRIN [Concomitant]
     Active Substance: ASPIRIN
     Dosage: 1 TAB/DAY
     Route: 048
     Dates: start: 2019, end: 2020
  3. GLUCOPHAGE [Concomitant]
     Active Substance: METFORMIN HYDROCHLORIDE
     Indication: Type 2 diabetes mellitus
     Dosage: 2 TABLET QD (1000 MG)
     Route: 048
     Dates: start: 2010
  4. JUSTECHOL [Concomitant]
     Indication: Blood cholesterol increased
     Dosage: 1 TABLET QD (AT NIGHT)
     Route: 048
     Dates: start: 2010
  5. FENOFIBRATE [Concomitant]
     Active Substance: FENOFIBRATE
     Indication: Blood cholesterol increased
     Dosage: 1 TABLET QD
     Route: 048
     Dates: start: 2019
  6. CHOLEROSE [Concomitant]
     Indication: Blood cholesterol increased
     Dosage: 1 TABLET QD
     Route: 048
     Dates: start: 2019
  7. CYANOCOBALAMIN [Concomitant]
     Active Substance: CYANOCOBALAMIN
     Indication: Vitamin supplementation
     Dosage: 4 TIMES PER MONTHS ( ONCE WEEKLY )
     Route: 030
     Dates: start: 2010
  8. CYANOCOBALAMIN [Concomitant]
     Active Substance: CYANOCOBALAMIN
     Dosage: 4 TIMES PER MONTHS ( ONCE WEEKLY ), STOPPED FOR A PERIOD AND SHE RETURNED
     Route: 030
     Dates: start: 2010
  9. NOVORAPID [Suspect]
     Active Substance: INSULIN ASPART
     Dosage: REDUCED HER NOVORAPID DOSE TO 12 U
     Route: 058
  10. NOVORAPID [Suspect]
     Active Substance: INSULIN ASPART
     Indication: Type 2 diabetes mellitus
     Dosage: 50 IU QD (16U BEFORE BREAKFAST, 18U BEFORE LUNCH AND 16U BEFORE DINNER)
     Route: 058

REACTIONS (3)
  - Retinal haemorrhage [Recovered/Resolved]
  - Cataract [Recovered/Resolved]
  - Treatment noncompliance [Unknown]

NARRATIVE: CASE EVENT DATE: 20220601
